FAERS Safety Report 7071017-6 (Version None)
Quarter: 2010Q4

REPORT INFORMATION
  Report Type: 
  Country: None (occurrence: None)
  Receive Date: 20101027
  Receipt Date: 20101027
  Transmission Date: 20110411
  Serious: No
  Sender: FDA-Public Use
  Company Number: None

PATIENT
  Age: 72 Year
  Sex: Male

DRUGS (1)
  1. DILTIAZEM CD 300MG ACTAVIS [Suspect]
     Indication: HYPERTENSION
     Dosage: 300MG 1QD PO
     Route: 048
     Dates: start: 20100830, end: 20101025

REACTIONS (2)
  - DRUG INEFFECTIVE [None]
  - PRODUCT SUBSTITUTION ISSUE [None]
